FAERS Safety Report 6383536-6 (Version None)
Quarter: 2009Q4

REPORT INFORMATION
  Report Type: 
  Country: None (occurrence: None)
  Receive Date: 20091001
  Receipt Date: 20090923
  Transmission Date: 20100525
  Serious: Yes (Death)
  Sender: FDA-Public Use
  Company Number: ZA-ROCHE-658271

PATIENT
  Age: 57 Year
  Sex: Male

DRUGS (2)
  1. PEGASYS [Suspect]
     Indication: HEPATITIS
     Route: 065
     Dates: start: 20080101, end: 20090701
  2. COPEGUS [Suspect]
     Indication: HEPATITIS
     Route: 065
     Dates: start: 20080101, end: 20090601

REACTIONS (1)
  - SUDDEN DEATH [None]
